FAERS Safety Report 7118371-4 (Version None)
Quarter: 2010Q4

REPORT INFORMATION
  Report Type: 
  Country: None (occurrence: None)
  Receive Date: 20101123
  Receipt Date: 20101108
  Transmission Date: 20110411
  Serious: Yes (Other)
  Sender: FDA-Public Use
  Company Number: DE-ALLERGAN-1015057US

PATIENT
  Age: 73 Year
  Sex: Female

DRUGS (8)
  1. TROSPIUM CHLORIDE [Suspect]
     Indication: HYPERTONIC BLADDER
     Dosage: 60 MG, QD
     Route: 048
     Dates: start: 20100921, end: 20101019
  2. AMARYL [Concomitant]
     Dosage: 1 MG, UNK
  3. METOPROLOL TARTRATE [Concomitant]
     Dosage: 47.5 MG, UNK
  4. DELIX [Concomitant]
     Dosage: 5 MG, UNK
  5. SERTRALIN [Concomitant]
     Dosage: 100 MG, UNK
  6. SIMVASTATIN [Concomitant]
     Dosage: 20 MG, UNK
  7. TILIDINE [Concomitant]
     Dosage: UNK
  8. METHOTREXATE [Concomitant]
     Dosage: 10 MG, Q WEEK

REACTIONS (2)
  - COUGH [None]
  - VOMITING [None]
